FAERS Safety Report 5888090-0 (Version None)
Quarter: 2008Q3

REPORT INFORMATION
  Report Type: 
  Country: None (occurrence: None)
  Receive Date: 20080918
  Receipt Date: 20080915
  Transmission Date: 20090109
  Serious: Yes (Life-Threatening, Hospitalization, Disabling, Other)
  Sender: FDA-Public Use
  Company Number: US-MERCK-0807USA02886

PATIENT
  Age: 85 Year
  Sex: Female

DRUGS (2)
  1. FOSAMAX [Suspect]
     Indication: BLOOD CALCIUM DECREASED
     Route: 048
     Dates: start: 19960101, end: 20080101
  2. ALENDRONATE SODIUM [Suspect]
     Indication: BLOOD CALCIUM DECREASED
     Route: 048
     Dates: start: 20080101, end: 20080714

REACTIONS (3)
  - ATRIAL FIBRILLATION [None]
  - FALL [None]
  - UPPER LIMB FRACTURE [None]
